FAERS Safety Report 8615257-0 (Version None)
Quarter: 2012Q3

REPORT INFORMATION
  Report Type: 
  Country: None (occurrence: None)
  Receive Date: 20120823
  Receipt Date: 20120814
  Transmission Date: 20120928
  Serious: Yes (Hospitalization, Disabling, Other)
  Sender: FDA-Public Use
  Company Number: US-009507513-1110USA04119

PATIENT

DRUGS (21)
  1. MK-9278 [Concomitant]
     Dosage: 1 U, QD
     Dates: start: 19700101
  2. FOSAMAX PLUS D [Suspect]
     Indication: OSTEOPOROSIS
     Dosage: 70-2800
     Route: 048
     Dates: start: 20060201, end: 20080101
  3. HORMONES (UNSPECIFIED) [Concomitant]
     Dates: start: 19860101, end: 20110101
  4. ULTRAM [Concomitant]
  5. PREMPRO [Concomitant]
     Indication: OSTEOPOROSIS
  6. FOSAMAX [Suspect]
     Dosage: 70 MG, UNK
     Route: 048
     Dates: start: 20090629, end: 20091213
  7. NORTRIPTYLINE [Concomitant]
  8. PREMARIN [Concomitant]
  9. BONIVA [Suspect]
     Indication: OSTEOPOROSIS
     Dosage: 150 MG, UNK
     Route: 048
     Dates: start: 20050924, end: 20060101
  10. FOSAMAX PLUS D [Suspect]
     Dosage: 70 MG, QW
     Route: 048
     Dates: start: 20080221, end: 20081107
  11. FOSAMAX [Suspect]
     Dosage: 70 MG, UNK
     Route: 048
     Dates: start: 20090201, end: 20100101
  12. CALCIUM (UNSPECIFIED) [Concomitant]
     Indication: OSTEOPOROSIS
  13. VITAMIN D [Concomitant]
  14. PERCOCET [Concomitant]
  15. CHOLECALCIFEROL [Concomitant]
     Indication: OSTEOPOROSIS
     Dosage: 5000 IU, QD
     Dates: start: 19970101
  16. FOSAMAX [Suspect]
     Dosage: UNK
     Route: 048
     Dates: start: 20090213
  17. FOSAMAX [Suspect]
     Dosage: 10 MG, UNK
     Route: 048
     Dates: start: 19971001, end: 20010201
  18. FOSAMAX [Suspect]
     Dosage: 70 MG, UNK
     Route: 048
     Dates: start: 20010301
  19. CALCIUM (UNSPECIFIED) (+) VITAMIN D (UNSPECIFIED) [Concomitant]
     Indication: OSTEOPOROSIS
     Dosage: 600/200
     Dates: start: 19970101
  20. FOSAMAX PLUS D [Suspect]
     Indication: OSTEOPENIA
     Dosage: 70 U, UNK
     Route: 048
     Dates: start: 20080201, end: 20090101
  21. TYLENOL [Concomitant]

REACTIONS (78)
  - DYSLIPIDAEMIA [None]
  - ADVERSE DRUG REACTION [None]
  - ACUTE SINUSITIS [None]
  - DYSMENORRHOEA [None]
  - MICTURITION URGENCY [None]
  - URETHRAL STENOSIS [None]
  - MIGRAINE [None]
  - GASTROOESOPHAGEAL REFLUX DISEASE [None]
  - OSTEONECROSIS [None]
  - FRACTURE DELAYED UNION [None]
  - ANAEMIA POSTOPERATIVE [None]
  - UTERINE SPASM [None]
  - STAPHYLOCOCCAL INFECTION [None]
  - JOINT DISLOCATION [None]
  - BONE FRAGMENTATION [None]
  - OEDEMA PERIPHERAL [None]
  - ARTHROPATHY [None]
  - UPPER RESPIRATORY TRACT INFECTION [None]
  - BLOOD POTASSIUM ABNORMAL [None]
  - HYPOKALAEMIA [None]
  - ANXIETY [None]
  - URINARY INCONTINENCE [None]
  - CONDITION AGGRAVATED [None]
  - ULNA FRACTURE [None]
  - HEADACHE [None]
  - ARTHRALGIA [None]
  - FRACTURE [None]
  - JOINT EFFUSION [None]
  - FATIGUE [None]
  - SPINAL OSTEOARTHRITIS [None]
  - GASTRIC DISORDER [None]
  - FALL [None]
  - ASTHMA [None]
  - DRUG INEFFECTIVE [None]
  - SWELLING FACE [None]
  - BREAST CANCER STAGE I [None]
  - HAND FRACTURE [None]
  - DEPRESSION [None]
  - EAR PAIN [None]
  - JOINT INJURY [None]
  - TONSILLAR DISORDER [None]
  - PAIN IN EXTREMITY [None]
  - LOW TURNOVER OSTEOPATHY [None]
  - FALLOPIAN TUBE DISORDER [None]
  - HYPOPHOSPHATASIA [None]
  - DECREASED APPETITE [None]
  - BLADDER DISORDER [None]
  - TOOTH INFECTION [None]
  - GAIT DISTURBANCE [None]
  - PIRIFORMIS SYNDROME [None]
  - MONOCLONAL IMMUNOGLOBULIN PRESENT [None]
  - URINARY TRACT INFECTION [None]
  - SCAR [None]
  - OSTEOARTHRITIS [None]
  - TOOTH DISORDER [None]
  - FOOT FRACTURE [None]
  - BONE METABOLISM DISORDER [None]
  - SINUSITIS [None]
  - CONTUSION [None]
  - HYPERTONIC BLADDER [None]
  - MALAISE [None]
  - DYSPEPSIA [None]
  - FEMUR FRACTURE [None]
  - UTERINE DISORDER [None]
  - POLYMYALGIA RHEUMATICA [None]
  - CALCIUM IONISED [None]
  - BIPOLAR DISORDER [None]
  - VAGINAL DISORDER [None]
  - UTERINE CERVIX STENOSIS [None]
  - FAECES HARD [None]
  - INTERVERTEBRAL DISC DEGENERATION [None]
  - ROTATOR CUFF SYNDROME [None]
  - SCIATICA [None]
  - UNDERWEIGHT [None]
  - OESTROGEN DEFICIENCY [None]
  - BONE DISORDER [None]
  - OSTEOLYSIS [None]
  - JOINT SWELLING [None]
